FAERS Safety Report 25389576 (Version 1)
Quarter: 2025Q2

REPORT INFORMATION
  Report Type: Spontaneous
  Country: US (occurrence: None)
  Receive Date: 20250602
  Receipt Date: 20250602
  Transmission Date: 20250717
  Serious: Yes (Other)
  Sender: FDA-CTU
  Company Number: None

PATIENT
  Age: 48 Year
  Sex: Female
  Weight: 47.25 kg

DRUGS (14)
  1. BUPROPION HYDROCHLORIDE [Suspect]
     Active Substance: BUPROPION HYDROCHLORIDE
     Indication: Major depression
     Route: 048
     Dates: start: 20250410
  2. BUPROPION HYDROCHLORIDE [Suspect]
     Active Substance: BUPROPION HYDROCHLORIDE
     Indication: Smoking cessation therapy
  3. BUPROPION HYDROCHLORIDE [Suspect]
     Active Substance: BUPROPION HYDROCHLORIDE
  4. Fentanyl patch 37mcg/hr [Concomitant]
  5. GABAPENTIN [Concomitant]
     Active Substance: GABAPENTIN
  6. WELLBUTRIN XL [Concomitant]
     Active Substance: BUPROPION HYDROCHLORIDE
  7. TOPAMAX [Concomitant]
     Active Substance: TOPIRAMATE
  8. Clonidine 0.1mg 1 [Concomitant]
  9. Alprazolam .25 mg tablet [Concomitant]
  10. Prochlorperazine Maleate 10mg [Concomitant]
  11. Allegra 24 hour - 180 mg [Concomitant]
  12. Nexium 20mg [Concomitant]
  13. CANNABIS SATIVA SUBSP. INDICA TOP [Concomitant]
     Active Substance: CANNABIS SATIVA SUBSP. INDICA TOP
  14. OXYCODONE [Concomitant]
     Active Substance: OXYCODONE

REACTIONS (4)
  - Drug ineffective [None]
  - Hot flush [None]
  - Initial insomnia [None]
  - Night sweats [None]

NARRATIVE: CASE EVENT DATE: 20250425
